FAERS Safety Report 11002934 (Version 3)
Quarter: 2015Q2

REPORT INFORMATION
  Report Type: Spontaneous
  Country: US (occurrence: US)
  Receive Date: 20150408
  Receipt Date: 20150415
  Transmission Date: 20150821
  Serious: Yes (Other)
  Sender: FDA-Public Use
  Company Number: US-ALLERGAN-1505879US

PATIENT
  Age: 74 Year
  Sex: Male

DRUGS (3)
  1. COMBIGAN[R] [Suspect]
     Active Substance: BRIMONIDINE TARTRATE\TIMOLOL MALEATE
     Indication: PRODUCT USED FOR UNKNOWN INDICATION
     Dosage: 1 GTT, QD
     Route: 047
     Dates: start: 2014
  2. LATANOPROST. [Suspect]
     Active Substance: LATANOPROST
     Dosage: 2 GTT, UNK
     Route: 047
     Dates: start: 2014, end: 20150330
  3. LATANOPROST. [Suspect]
     Active Substance: LATANOPROST
     Indication: EYE INFLAMMATION
     Dosage: 1 GTT, QD
     Route: 047

REACTIONS (7)
  - Inappropriate schedule of drug administration [Unknown]
  - Intentional product misuse [None]
  - Cataract operation [Unknown]
  - Intraocular pressure increased [Unknown]
  - Visual acuity reduced [Not Recovered/Not Resolved]
  - Corneal oedema [Unknown]
  - Expired product administered [Unknown]

NARRATIVE: CASE EVENT DATE: 201410
